FAERS Safety Report 4976527-0 (Version None)
Quarter: 2006Q2

REPORT INFORMATION
  Report Type: 
  Country: None (occurrence: None)
  Receive Date: 20060412
  Receipt Date: 20060328
  Transmission Date: 20061013
  Serious: Yes (Hospitalization, Congenital Anomaly)
  Sender: FDA-Public Use
  Company Number: 2006BI004678

PATIENT
  Sex: Female
  Weight: 3.1752 kg

DRUGS (1)
  1. AVONEX [Suspect]
     Indication: MULTIPLE SCLEROSIS
     Dosage: 30 UG;QW;TRPL
     Route: 064
     Dates: start: 20040901, end: 20041201

REACTIONS (6)
  - CONGENITAL ANOMALY [None]
  - CONGENITAL HEART VALVE DISORDER [None]
  - DRUG EXPOSURE DURING PREGNANCY [None]
  - ECZEMA [None]
  - JAUNDICE NEONATAL [None]
  - NEONATAL DISORDER [None]
